FAERS Safety Report 24123062 (Version 1)
Quarter: 2024Q3

REPORT INFORMATION
  Report Type: Spontaneous
  Country: US (occurrence: US)
  Receive Date: 20240723
  Receipt Date: 20240723
  Transmission Date: 20241017
  Serious: No
  Sender: OTSUKA
  Company Number: US-OTSUKA-2024_017449

PATIENT
  Age: 81 Year
  Sex: Female
  Weight: 63.96 kg

DRUGS (3)
  1. REXULTI [Suspect]
     Active Substance: BREXPIPRAZOLE
     Indication: Nightmare
     Dosage: 1 MG, QD
     Route: 048
     Dates: start: 20240613
  2. REXULTI [Suspect]
     Active Substance: BREXPIPRAZOLE
     Indication: Confusional state
  3. REXULTI [Suspect]
     Active Substance: BREXPIPRAZOLE
     Indication: Anger

REACTIONS (3)
  - Hyperphagia [Unknown]
  - Inability to afford medication [Unknown]
  - Off label use [Unknown]

NARRATIVE: CASE EVENT DATE: 20240613
